FAERS Safety Report 12119830 (Version 3)
Quarter: 2016Q2

REPORT INFORMATION
  Report Type: Report from Study
  Country: NL (occurrence: NL)
  Receive Date: 20160226
  Receipt Date: 20160516
  Transmission Date: 20160815
  Serious: Yes (Hospitalization, Other)
  Sender: FDA-Public Use
  Company Number: NL-ABBVIE-16P-114-1567362-00

PATIENT
  Age: 83 Year
  Sex: Male
  Weight: 82 kg

DRUGS (1)
  1. LUCRIN DEPOT [Suspect]
     Active Substance: LEUPROLIDE ACETATE
     Indication: PROSTATE CANCER
     Route: 050
     Dates: start: 20090820

REACTIONS (4)
  - Contusion [Recovered/Resolved]
  - Device occlusion [Recovered/Resolved]
  - Chest discomfort [Recovered/Resolved]
  - Angioplasty [Unknown]

NARRATIVE: CASE EVENT DATE: 201601
